FAERS Safety Report 4473634-6 (Version None)
Quarter: 2004Q3

REPORT INFORMATION
  Report Type: 
  Country: None (occurrence: None)
  Receive Date: 20040907
  Receipt Date: 20040707
  Transmission Date: 20050211
  Serious: No
  Sender: FDA-Public Use
  Company Number: USA040671492

PATIENT
  Age: 53 Year
  Sex: Male

DRUGS (8)
  1. ALIMTA [Suspect]
     Indication: MESOTHELIOMA
     Dates: start: 20040623
  2. CISPLATIN [Concomitant]
  3. DECADRON [Concomitant]
  4. VITAMIN B-12 [Concomitant]
  5. FOLIC ACID [Concomitant]
  6. OXYCONTIN [Concomitant]
  7. GUAIFEENESIN (GUAIFENESIN) [Concomitant]
  8. COUMADIN [Concomitant]

REACTIONS (2)
  - RASH [None]
  - WHEEZING [None]
